FAERS Safety Report 5323922-6 (Version None)
Quarter: 2007Q2

REPORT INFORMATION
  Report Type: 
  Country: None (occurrence: None)
  Receive Date: 20070509
  Receipt Date: 20070509
  Transmission Date: 20071010
  Serious: No
  Sender: FDA-Public Use
  Company Number: None

PATIENT
  Age: 71 Year
  Sex: Male

DRUGS (1)
  1. SUCRALFATE [Suspect]
     Dosage: 1 TABLET BY MOUTH TWICE A DAY
     Dates: start: 20070301, end: 20070401

REACTIONS (3)
  - ODYNOPHAGIA [None]
  - PHARMACEUTICAL PRODUCT COMPLAINT [None]
  - SENSATION OF FOREIGN BODY [None]
